FAERS Safety Report 5457631-X (Version None)
Quarter: 2007Q3

REPORT INFORMATION
  Report Type: 
  Country: None (occurrence: None)
  Receive Date: 20070918
  Receipt Date: 20070906
  Transmission Date: 20080115
  Serious: No
  Sender: FDA-Public Use
  Company Number: US-BOEHRINGER INGELHEIM PHARMACEUTICALS, INC.-2007-BP-19236BP

PATIENT
  Age: 48 Year
  Sex: Female
  Weight: 96 kg

DRUGS (6)
  1. MICARDIS HCT [Suspect]
     Indication: HYPERTENSION
     Dosage: 40MG/12.5MG
     Route: 048
     Dates: start: 20051028, end: 20070725
  2. BUSPAR [Concomitant]
     Route: 048
     Dates: start: 20031205
  3. XANAX [Concomitant]
     Route: 048
     Dates: start: 20031215
  4. CITALOPRAM [Concomitant]
     Route: 048
     Dates: start: 20060217, end: 20070723
  5. AMBIEN [Concomitant]
     Route: 048
     Dates: start: 20031215
  6. SYNTHROID [Concomitant]
     Route: 048
     Dates: start: 20060217

REACTIONS (3)
  - DERMATITIS [None]
  - DERMATITIS ALLERGIC [None]
  - RASH [None]
